FAERS Safety Report 17515991 (Version 2)
Quarter: 2020Q1

REPORT INFORMATION
  Report Type: Spontaneous
  Country: GB (occurrence: GB)
  Receive Date: 20200309
  Receipt Date: 20200316
  Transmission Date: 20200409
  Serious: Yes (Death, Hospitalization)
  Sender: FDA-Public Use
  Company Number: GB-MYLANLABS-2020M1025526

PATIENT
  Age: 61 Year
  Sex: Female

DRUGS (20)
  1. DAPAGLIFLOZIN. [Suspect]
     Active Substance: DAPAGLIFLOZIN
     Indication: TYPE 2 DIABETES MELLITUS
     Dosage: MORNING
     Route: 048
     Dates: start: 201807, end: 20200124
  2. QUETIAPINE. [Concomitant]
     Active Substance: QUETIAPINE
  3. VENLAFAXINE [Concomitant]
     Active Substance: VENLAFAXINE HYDROCHLORIDE
  4. GLICLAZIDE [Concomitant]
     Active Substance: GLICLAZIDE
     Dosage: UNK
  5. TEMAZEPAM. [Concomitant]
     Active Substance: TEMAZEPAM
     Dosage: UNK
  6. PREDNISOLONE. [Concomitant]
     Active Substance: PREDNISOLONE
  7. FOSTAIR [Concomitant]
     Active Substance: BECLOMETHASONE\FORMOTEROL
  8. SIMVASTATIN. [Concomitant]
     Active Substance: SIMVASTATIN
  9. RAMIPRIL. [Concomitant]
     Active Substance: RAMIPRIL
  10. ADCAL D3 [Concomitant]
     Active Substance: CALCIUM CARBONATE\CHOLECALCIFEROL
  11. DOXYCYCLINE. [Concomitant]
     Active Substance: DOXYCYCLINE
  12. CETIRIZINE [Concomitant]
     Active Substance: CETIRIZINE HYDROCHLORIDE
  13. LEVOTHYROXINE. [Concomitant]
     Active Substance: LEVOTHYROXINE
  14. OMEPRAZOLE. [Concomitant]
     Active Substance: OMEPRAZOLE
  15. SODIUM VALPROATE [Concomitant]
     Active Substance: VALPROATE SODIUM
  16. TRIFLUOPERAZINE [Concomitant]
     Active Substance: TRIFLUOPERAZINE HYDROCHLORIDE
  17. SALBUTAMOL [Concomitant]
     Active Substance: ALBUTEROL
  18. METFORMIN [Suspect]
     Active Substance: METFORMIN HYDROCHLORIDE
     Indication: TYPE 2 DIABETES MELLITUS
     Dosage: 2550 MILLIGRAM, QD
     Route: 048
     Dates: end: 20200124
  19. FERROUS FUMARATE [Concomitant]
     Active Substance: FERROUS FUMARATE
  20. PROCYCLIDINE [Concomitant]
     Active Substance: PROCYCLIDINE

REACTIONS (10)
  - Abdominal distension [Unknown]
  - Hypothermia [Unknown]
  - Diarrhoea [Unknown]
  - Lactic acidosis [Fatal]
  - Coeliac disease [Not Recovered/Not Resolved]
  - Multiple organ dysfunction syndrome [Unknown]
  - Chronic obstructive pulmonary disease [Not Recovered/Not Resolved]
  - Diabetes mellitus [Not Recovered/Not Resolved]
  - Schizophrenia [Not Recovered/Not Resolved]
  - Hypotension [Unknown]

NARRATIVE: CASE EVENT DATE: 20200124
